FAERS Safety Report 25670589 (Version 1)
Quarter: 2025Q3

REPORT INFORMATION
  Report Type: Report from Study
  Country: US (occurrence: US)
  Receive Date: 20250812
  Receipt Date: 20250812
  Transmission Date: 20251020
  Serious: Yes (Other)
  Sender: JOHNSON AND JOHNSON
  Company Number: US-JNJFOC-20250807109

PATIENT
  Sex: Male

DRUGS (1)
  1. TALVEY [Suspect]
     Active Substance: TALQUETAMAB-TGVS
     Indication: Plasma cell myeloma
     Route: 065
     Dates: start: 20250716

REACTIONS (8)
  - Neuropathy peripheral [Unknown]
  - Pyrexia [Recovered/Resolved]
  - Malaise [Unknown]
  - Ageusia [Unknown]
  - Dyspnoea [Unknown]
  - Fatigue [Unknown]
  - Oral pain [Unknown]
  - Paraesthesia [Unknown]
